FAERS Safety Report 6754207-9 (Version None)
Quarter: 2010Q2

REPORT INFORMATION
  Report Type: 
  Country: None (occurrence: None)
  Receive Date: 20100603
  Receipt Date: 20100521
  Transmission Date: 20101027
  Serious: Yes (Congenital Anomaly, Other)
  Sender: FDA-Public Use
  Company Number: GR-ELI_LILLY_AND_COMPANY-GR201005006365

PATIENT
  Sex: Male

DRUGS (8)
  1. ZYPREXA [Suspect]
     Indication: PSYCHOTIC DISORDER
     Dosage: 10 MG, DAILY (1/D)
     Route: 064
     Dates: start: 20000101, end: 20100202
  2. ZYPREXA [Suspect]
     Dosage: 5 MG, DAILY (1/D)
     Route: 064
     Dates: start: 20100203, end: 20100226
  3. ZYPREXA [Suspect]
     Dosage: 5 MG, 2/D
     Route: 064
     Dates: start: 20100227
  4. PRIMOLUT                           /00044901/ [Concomitant]
     Indication: MENOPAUSE
     Route: 064
     Dates: end: 20100107
  5. OMEPRAZOLE [Concomitant]
     Indication: GASTROINTESTINAL DISORDER
     Dosage: 20 MG, UNK
     Route: 064
     Dates: end: 20100107
  6. MELOX PLUS [Concomitant]
     Indication: GASTROINTESTINAL DISORDER
     Route: 064
     Dates: end: 20100107
  7. FILICINE [Concomitant]
     Indication: PREGNANCY
     Route: 064
     Dates: start: 20100101
  8. OTRIVIN [Concomitant]
     Route: 064
     Dates: end: 20100107

REACTIONS (3)
  - CONGENITAL TRICUSPID VALVE INCOMPETENCE [None]
  - DRUG EXPOSURE DURING PREGNANCY [None]
  - SINGLE UMBILICAL ARTERY [None]
